FAERS Safety Report 19845668 (Version 1)
Quarter: 2021Q3

REPORT INFORMATION
  Report Type: Spontaneous
  Country: DE (occurrence: DE)
  Receive Date: 20210917
  Receipt Date: 20210917
  Transmission Date: 20211014
  Serious: Yes (Hospitalization)
  Sender: FDA-Public Use
  Company Number: DE-TEVA-2021-DE-1951953

PATIENT
  Age: 63 Year
  Sex: Female

DRUGS (9)
  1. CANDESARTAN/HYDROCHLOROTHIAZID [Concomitant]
     Active Substance: CANDESARTAN CILEXETIL\HYDROCHLOROTHIAZIDE
     Dosage: 1 DOSAGE FORMS DAILY; 16|12.5 MG, 1?0?0?0
  2. PACLITAXEL. [Suspect]
     Active Substance: PACLITAXEL
     Dosage: SCHEME
  3. BUDESONIDE. [Concomitant]
     Active Substance: BUDESONIDE
     Dosage: 200 MICROGRAM DAILY; 1?0?0?0
  4. KALIUMIODID/LEVOTHYROXIN?NATRIUM [Concomitant]
     Dosage: 50 MICROGRAM DAILY; 1?0?0?0
  5. CARBOPLATIN. [Suspect]
     Active Substance: CARBOPLATIN
     Dosage: SCHEME
  6. ESOMEPRAZOL [Concomitant]
     Active Substance: ESOMEPRAZOLE
     Dosage: 20 MILLIGRAM DAILY; 0?1?0?0
  7. SERTRALIN [Concomitant]
     Active Substance: SERTRALINE HYDROCHLORIDE
     Dosage: 50 MILLIGRAM DAILY; 1?0?0?0
  8. MAPROTILIN [Concomitant]
     Active Substance: MAPROTILINE
     Dosage: 75 MILLIGRAM DAILY; 0?0?1?0
  9. BISOPROLOL [Concomitant]
     Active Substance: BISOPROLOL
     Dosage: 2.5 MILLIGRAM DAILY; 1?0?0?0

REACTIONS (9)
  - General physical health deterioration [Unknown]
  - Aphasia [Unknown]
  - Disorientation [Unknown]
  - Language disorder [Unknown]
  - Restlessness [Unknown]
  - Cerebral infarction [Unknown]
  - Anaemia [Unknown]
  - Hemiparesis [Unknown]
  - Weight increased [Unknown]
